FAERS Safety Report 20553337 (Version 1)
Quarter: 2022Q1

REPORT INFORMATION
  Report Type: Spontaneous
  Country: US (occurrence: None)
  Receive Date: 20220304
  Receipt Date: 20220304
  Transmission Date: 20220423
  Serious: No
  Sender: FDA-Public Use
  Company Number: None

PATIENT
  Age: 77 Year
  Sex: Male
  Weight: 86.85 kg

DRUGS (1)
  1. EVUSHELD [Suspect]
     Active Substance: CILGAVIMAB\TIXAGEVIMAB
     Indication: COVID-19 prophylaxis
     Dosage: OTHER QUANTITY : 2 INJECTION(S);?FREQUENCY : AS NEEDED;?
     Route: 058
     Dates: start: 20220303, end: 20220303

REACTIONS (3)
  - Product preparation error [None]
  - Product commingling [None]
  - Product administration error [None]

NARRATIVE: CASE EVENT DATE: 20220303
